FAERS Safety Report 8818058 (Version 3)
Quarter: 2013Q2

REPORT INFORMATION
  Report Type: Report from Study
  Country: US (occurrence: US)
  Receive Date: 20121001
  Receipt Date: 20130503
  Transmission Date: 20140414
  Serious: Yes (Hospitalization, Other)
  Sender: FDA-Public Use
  Company Number: US-ABBOTT-12P-163-0986218-00

PATIENT
  Age: 66 Year
  Sex: Female
  Weight: 39.95 kg

DRUGS (3)
  1. HUMIRA [Suspect]
     Indication: CROHN^S DISEASE
     Dates: start: 20120625, end: 201209
  2. HUMIRA [Suspect]
     Indication: ILEITIS
     Dates: start: 201209
  3. BUDESONIDE [Concomitant]
     Indication: PRODUCT USED FOR UNKNOWN INDICATION

REACTIONS (6)
  - Abdominal adhesions [Recovering/Resolving]
  - Pain [Recovering/Resolving]
  - Crohn^s disease [Recovering/Resolving]
  - Gastrointestinal disorder [Recovering/Resolving]
  - Intestinal resection [Recovering/Resolving]
  - Drug ineffective [Recovered/Resolved]
